FAERS Safety Report 15886092 (Version 2)
Quarter: 2019Q1

REPORT INFORMATION
  Report Type: Spontaneous
  Country: PT (occurrence: PT)
  Receive Date: 20190129
  Receipt Date: 20190321
  Transmission Date: 20190417
  Serious: Yes (Hospitalization, Other)
  Sender: FDA-Public Use
  Company Number: PHHY2018PT122440

PATIENT
  Age: 70 Year
  Sex: Female

DRUGS (3)
  1. SERTRALINE HYDROCHLORIDE. [Suspect]
     Active Substance: SERTRALINE HYDROCHLORIDE
     Indication: DEMENTIA ALZHEIMER^S TYPE
     Dosage: UNK
     Route: 065
  2. QUETIAPINE. [Suspect]
     Active Substance: QUETIAPINE
     Indication: DEMENTIA ALZHEIMER^S TYPE
     Dosage: UNK
     Route: 048
  3. MEMANTINE HYDROCHLORIDE. [Suspect]
     Active Substance: MEMANTINE HYDROCHLORIDE
     Indication: DEMENTIA ALZHEIMER^S TYPE
     Dosage: UNK
     Route: 065

REACTIONS (9)
  - Myoclonus [Recovering/Resolving]
  - Blood creatine phosphokinase increased [Recovering/Resolving]
  - Leukocytosis [Recovering/Resolving]
  - Hyperhidrosis [Recovering/Resolving]
  - Neuroleptic malignant syndrome [Recovering/Resolving]
  - Pyrexia [Recovering/Resolving]
  - Hypernatraemia [Recovering/Resolving]
  - Catatonia [Recovering/Resolving]
  - Musculoskeletal stiffness [Recovering/Resolving]
